FAERS Safety Report 15885816 (Version 1)
Quarter: 2019Q1

REPORT INFORMATION
  Report Type: Spontaneous
  Country: US (occurrence: US)
  Receive Date: 20190108
  Receipt Date: 20190108
  Transmission Date: 20190417
  Serious: No
  Sender: FDA-Public Use
  Company Number: None

PATIENT
  Age: 74 Year
  Sex: Female

DRUGS (1)
  1. TOBRAMYCIN. [Suspect]
     Active Substance: TOBRAMYCIN
     Indication: BRONCHIECTASIS
     Route: 055
     Dates: start: 20181203

REACTIONS (5)
  - Breath odour [None]
  - Respiratory tract irritation [None]
  - Therapy cessation [None]
  - Toxicity to various agents [None]
  - Chemical burn [None]

NARRATIVE: CASE EVENT DATE: 201812
